FAERS Safety Report 24457374 (Version 1)
Quarter: 2024Q4

REPORT INFORMATION
  Report Type: Report from Study
  Country: US (occurrence: US)
  Receive Date: 20241018
  Receipt Date: 20241018
  Transmission Date: 20250114
  Serious: Yes (Other)
  Sender: GILEAD
  Company Number: US-GILEAD-2024-0691168

PATIENT
  Sex: Female

DRUGS (1)
  1. AZTREONAM LYSINE [Suspect]
     Active Substance: AZTREONAM LYSINE
     Indication: Cystic fibrosis
     Dosage: INHALE 75 MG 3 TIMES DAILY AT LEAST 4 HOURS APART CYCLING FOR 28 DAYS ON THEN 28 DAYS OFF
     Route: 055

REACTIONS (2)
  - Cystic fibrosis [Not Recovered/Not Resolved]
  - Malaise [Not Recovered/Not Resolved]
